FAERS Safety Report 7549879-5 (Version None)
Quarter: 2011Q2

REPORT INFORMATION
  Report Type: 
  Country: None (occurrence: None)
  Receive Date: 20110525
  Receipt Date: 20110209
  Transmission Date: 20111010
  Serious: No
  Sender: FDA-Public Use
  Company Number: 323069

PATIENT
  Age: 72 Year
  Sex: Female

DRUGS (4)
  1. VICTOZA [Suspect]
     Indication: TYPE 2 DIABETES MELLITUS
     Dosage: SUBCUTANEOUS
     Route: 058
     Dates: start: 20101119
  2. AMARYL [Concomitant]
  3. QUINAPRIL HCL [Concomitant]
  4. PRAVASTATIN [Concomitant]

REACTIONS (1)
  - BREAST DISCHARGE [None]
